FAERS Safety Report 17000540 (Version 4)
Quarter: 2024Q1

REPORT INFORMATION
  Report Type: Spontaneous
  Country: ES (occurrence: ES)
  Receive Date: 20191106
  Receipt Date: 20240315
  Transmission Date: 20240409
  Serious: Yes (Life-Threatening, Hospitalization, Other)
  Sender: FDA-Public Use
  Company Number: ES-002147023-PHHY2019ES058052

PATIENT
  Age: 62 Year
  Sex: Male

DRUGS (7)
  1. DAPTOMYCIN [Suspect]
     Active Substance: DAPTOMYCIN
     Indication: Respiratory tract infection
     Dosage: 700 MG, QD
     Route: 042
     Dates: start: 20190208, end: 20190211
  2. LEVOFLOXACIN [Suspect]
     Active Substance: LEVOFLOXACIN
     Indication: Respiratory tract infection
     Dosage: 500 MG, QD
     Route: 042
     Dates: start: 20190205, end: 20190211
  3. HYDRALAZINE [Suspect]
     Active Substance: HYDRALAZINE HYDROCHLORIDE
     Indication: Product used for unknown indication
     Dosage: 12.5 MG, Q8H
     Route: 048
     Dates: start: 20190208, end: 20190210
  4. HYDRALAZINE [Suspect]
     Active Substance: HYDRALAZINE HYDROCHLORIDE
     Dosage: 25 MILLIGRAM, Q8H
     Route: 048
     Dates: start: 20190210, end: 20190211
  5. SULFAMETHOXAZOLE\TRIMETHOPRIM [Suspect]
     Active Substance: SULFAMETHOXAZOLE\TRIMETHOPRIM
     Indication: Product used for unknown indication
     Dosage: 1 DF, Q12H, (160MG/ 800MG POWDER AND SOLUTION FOR INJECTABLE SOLUTION, 5 VIALS + 5 AMPOULES)
     Route: 042
     Dates: start: 20190131, end: 20190205
  6. METOCLOPRAMIDE [Concomitant]
     Active Substance: METOCLOPRAMIDE
     Indication: Product used for unknown indication
     Dosage: 10 MG, Q8H
     Route: 042
     Dates: start: 20190203, end: 20190218
  7. PANTOPRAZOLE [Concomitant]
     Active Substance: PANTOPRAZOLE
     Indication: Product used for unknown indication
     Dosage: 40 MG, QD
     Route: 042
     Dates: start: 20190204, end: 20190218

REACTIONS (1)
  - Agranulocytosis [Recovered/Resolved]

NARRATIVE: CASE EVENT DATE: 20190211
